FAERS Safety Report 20026916 (Version 1)
Quarter: 2021Q4

REPORT INFORMATION
  Report Type: Report from Study
  Country: DE (occurrence: DE)
  Receive Date: 20211103
  Receipt Date: 20211103
  Transmission Date: 20220303
  Serious: Yes (Death, Other)
  Sender: FDA-Public Use
  Company Number: DE-SUN PHARMACEUTICAL INDUSTRIES LTD-2021RR-316588

PATIENT
  Age: 46 Year
  Sex: Female

DRUGS (1)
  1. ERLOTINIB [Suspect]
     Active Substance: ERLOTINIB
     Indication: Vulval cancer
     Dosage: UNK
     Route: 065

REACTIONS (5)
  - Neoplasm progression [Fatal]
  - Hepatic enzyme increased [Unknown]
  - Skin fissures [Unknown]
  - Diarrhoea [Unknown]
  - Clostridium difficile infection [Unknown]
